FAERS Safety Report 5995734-1 (Version None)
Quarter: 2008Q4

REPORT INFORMATION
  Report Type: 
  Country: None (occurrence: None)
  Receive Date: 20081210
  Receipt Date: 20081125
  Transmission Date: 20090506
  Serious: Yes (Hospitalization)
  Sender: FDA-Public Use
  Company Number: 2008083710

PATIENT
  Age: 76 Year
  Sex: Male

DRUGS (12)
  1. FRAGMIN [Suspect]
     Indication: EMBOLISM
     Dates: start: 20080915, end: 20081001
  2. FRAGMIN [Suspect]
     Indication: SMALL CELL LUNG CANCER STAGE UNSPECIFIED
     Dates: start: 20080915, end: 20081001
  3. CARBOPLATIN [Suspect]
     Indication: CHEMOTHERAPY
     Dates: start: 20080917, end: 20080917
  4. CARBOPLATIN [Suspect]
     Indication: CHEMOTHERAPY
     Dates: start: 20080923, end: 20080923
  5. GEMCITABINE [Suspect]
     Indication: CHEMOTHERAPY
     Dates: start: 20080917, end: 20080917
  6. GEMCITABINE [Suspect]
     Indication: CHEMOTHERAPY
     Dates: start: 20080923, end: 20080923
  7. OMEPRAZOLE [Concomitant]
  8. ACETYLSALICYLIC ACID SRT [Concomitant]
  9. MORPHINE [Concomitant]
  10. ZOPICLONE (ZOPICLONE) [Concomitant]
  11. ACETAMINOPHEN [Concomitant]
  12. DICLOFENAC SODIUM [Concomitant]

REACTIONS (7)
  - EPISTAXIS [None]
  - HAEMOGLOBIN DECREASED [None]
  - NEUTROPENIA [None]
  - PETECHIAE [None]
  - RASH [None]
  - THROMBOCYTOPENIA [None]
  - WHITE BLOOD CELL COUNT DECREASED [None]
